FAERS Safety Report 19687413 (Version 1)
Quarter: 2021Q3

REPORT INFORMATION
  Report Type: Spontaneous
  Country: CN (occurrence: CN)
  Receive Date: 20210811
  Receipt Date: 20210811
  Transmission Date: 20211014
  Serious: Yes (Other)
  Sender: FDA-Public Use
  Company Number: CN-PFIZER INC-202100963948

PATIENT
  Age: 27 Year
  Sex: Female
  Weight: 56 kg

DRUGS (1)
  1. HEMABATE [Suspect]
     Active Substance: CARBOPROST TROMETHAMINE
     Indication: SYMPTOMATIC TREATMENT
     Dosage: 250 UG, 1X/DAY
     Route: 041
     Dates: start: 20210707, end: 20210707

REACTIONS (8)
  - Off label use [Recovered/Resolved]
  - Diarrhoea [Recovering/Resolving]
  - Abdominal pain [Unknown]
  - Vomiting [Unknown]
  - Gastroenteritis [Recovering/Resolving]
  - Product use issue [Recovered/Resolved]
  - Blood count abnormal [Unknown]
  - Nausea [Unknown]

NARRATIVE: CASE EVENT DATE: 20210707
